FAERS Safety Report 7136018-8 (Version None)
Quarter: 2010Q4

REPORT INFORMATION
  Report Type: 
  Country: None (occurrence: None)
  Receive Date: 20101204
  Receipt Date: 20101117
  Transmission Date: 20110411
  Serious: Yes (Other)
  Sender: FDA-Public Use
  Company Number: US-BAYER-201034037GPV

PATIENT
  Sex: Male

DRUGS (6)
  1. VENTAVIS [Suspect]
     Dosage: FIRST AND LAST SHIPMENT ON 16-JUN-2010 - I-NEB AAD SYSTEM AND I-NEB CHAMBER PURPLE
     Route: 055
  2. TRACLEER [Suspect]
     Dosage: FIRST SHIPMENT ON 02-NOV-2009 AND LAST SHIPMENT ON 16-JUN-2010
  3. TRACLEER [Suspect]
     Dosage: FIRST SHIPMENT ON 02-NOV-2009 AND LAST SHIPMENT ON 02-NOV-2010
  4. TADALAFIL [Concomitant]
     Indication: PULMONARY ARTERIAL HYPERTENSION
  5. CALCIUM CHANNEL BLOCKERS [Concomitant]
     Indication: PULMONARY ARTERIAL HYPERTENSION
  6. COUMADIN [Concomitant]
     Indication: PULMONARY ARTERIAL HYPERTENSION

REACTIONS (3)
  - CHEST DISCOMFORT [None]
  - MYALGIA [None]
  - NO THERAPEUTIC RESPONSE [None]
